FAERS Safety Report 6417004-X (Version None)
Quarter: 2009Q4

REPORT INFORMATION
  Report Type: 
  Country: None (occurrence: None)
  Receive Date: 20091023
  Receipt Date: 20091012
  Transmission Date: 20100525
  Serious: Yes (Hospitalization)
  Sender: FDA-Public Use
  Company Number: 89603

PATIENT
  Age: 4 Day
  Sex: Male

DRUGS (1)
  1. AMIODARONE HCL [Suspect]
     Indication: ARRHYTHMIA
     Dosage: 1200MG/M2 (47MG/KG) IV OVER A 30 MINUTE P
     Route: 042

REACTIONS (15)
  - BRADYCARDIA NEONATAL [None]
  - DRUG TOXICITY [None]
  - ENCEPHALOPATHY NEONATAL [None]
  - HEPATIC FAILURE [None]
  - HYPOPERFUSION [None]
  - INCORRECT DOSE ADMINISTERED [None]
  - INCORRECT ROUTE OF DRUG ADMINISTRATION [None]
  - LACTIC ACIDOSIS [None]
  - MEDICATION ERROR [None]
  - MYOCARDIAL ISCHAEMIA [None]
  - NEONATAL DISORDER [None]
  - NEONATAL HYPOTENSION [None]
  - NEONATAL MULTI-ORGAN FAILURE [None]
  - RENAL FAILURE NEONATAL [None]
  - UNRESPONSIVE TO STIMULI [None]
